FAERS Safety Report 7563575-X (Version None)
Quarter: 2011Q2

REPORT INFORMATION
  Report Type: 
  Country: None (occurrence: None)
  Receive Date: 20110615
  Receipt Date: 20110602
  Transmission Date: 20111010
  Serious: Yes (Other)
  Sender: FDA-Public Use
  Company Number: 1000021540

PATIENT
  Age: 61 Year
  Sex: Female
  Weight: 55 kg

DRUGS (5)
  1. SIMVASTATINE (SIMVASTATIN) (TABLETS) (SIMVASTATIN) [Concomitant]
  2. LEXAPRO [Suspect]
     Indication: DEPRESSION
     Dosage: 20 MG (10 MG, 2 IN 1 D), ORAL; 10 MG (10 MG, 1 IN 1 D), ORAL
     Route: 048
     Dates: start: 20110512
  3. LEXAPRO [Suspect]
     Indication: DEPRESSION
     Dosage: 20 MG (10 MG, 2 IN 1 D), ORAL; 10 MG (10 MG, 1 IN 1 D), ORAL
     Route: 048
     Dates: start: 20110209, end: 20110511
  4. SPIRIVA (TIOTROPIUM BROMIDE) (TIOTROPIUM BROMIDE) [Concomitant]
  5. SYMBICORT (BUDESONIDE W/FORMOTEROL FUMARATE) (BUDESONIDE W/FORMOTEROL [Concomitant]

REACTIONS (2)
  - ANAL HAEMORRHAGE [None]
  - ECCHYMOSIS [None]
